FAERS Safety Report 5241887-2 (Version None)
Quarter: 2007Q1

REPORT INFORMATION
  Report Type: 
  Country: None (occurrence: None)
  Receive Date: 20070220
  Receipt Date: 20070206
  Transmission Date: 20070707
  Serious: Yes (Other)
  Sender: FDA-Public Use
  Company Number: DE-ELI_LILLY_AND_COMPANY-DE200702001747

PATIENT
  Age: 50 Year
  Sex: Male

DRUGS (4)
  1. CYMBALTA [Suspect]
     Indication: DIABETIC NEUROPATHY
     Dosage: 60 MG, DAILY (1/D)
     Route: 048
     Dates: start: 20050101, end: 20050101
  2. DIURETICS [Concomitant]
  3. FENTANYL [Concomitant]
     Route: 062
  4. CARDIAC THERAPY [Concomitant]

REACTIONS (2)
  - RENAL FAILURE [None]
  - SOMNOLENCE [None]
